FAERS Safety Report 11080309 (Version 1)
Quarter: 2015Q2

REPORT INFORMATION
  Report Type: Spontaneous
  Country: NL (occurrence: NL)
  Receive Date: 20150430
  Receipt Date: 20150430
  Transmission Date: 20150821
  Serious: Yes (Death)
  Sender: FDA-Public Use
  Company Number: NL-ASTRAZENECA-2015SE39932

PATIENT
  Age: 23025 Day
  Sex: Male

DRUGS (5)
  1. QUETIAPINE FUMARATE. [Suspect]
     Active Substance: QUETIAPINE FUMARATE
     Indication: AKATHISIA
     Route: 048
     Dates: start: 20150130
  2. NATRIUMCHLORIDE [Concomitant]
     Route: 055
     Dates: start: 20150403
  3. SALBUTAMOL VERNEVELVLST [Concomitant]
     Route: 055
     Dates: start: 20150402
  4. WATER GEDESTILLEERD [Concomitant]
     Route: 050
     Dates: start: 20150403
  5. ACETYLCYSTEINE VERNEVELVLST [Concomitant]
     Route: 055
     Dates: start: 20150402

REACTIONS (1)
  - Death [Fatal]

NARRATIVE: CASE EVENT DATE: 20150412
